FAERS Safety Report 10025237 (Version 1)
Quarter: 2014Q1

REPORT INFORMATION
  Report Type: Spontaneous
  Country: US (occurrence: None)
  Receive Date: 20140319
  Receipt Date: 20140319
  Transmission Date: 20141002
  Serious: No
  Sender: FDA-Public Use
  Company Number: None

PATIENT
  Sex: Female

DRUGS (1)
  1. AVOBENZONE [Suspect]
     Dosage: 1 APPLIC.
     Route: 061

REACTIONS (6)
  - Rash [None]
  - Dysphagia [None]
  - Paraesthesia oral [None]
  - Hypoaesthesia oral [None]
  - Feeling hot [None]
  - Pigmentation disorder [None]
